FAERS Safety Report 4738225-8 (Version None)
Quarter: 2005Q3

REPORT INFORMATION
  Report Type: 
  Country: None (occurrence: None)
  Receive Date: 20050808
  Receipt Date: 20050706
  Transmission Date: 20060218
  Serious: Yes (Disabling)
  Sender: FDA-Public Use
  Company Number: MPS1-10401

PATIENT
  Age: 6 Year
  Sex: Female
  Weight: 13.14 kg

DRUGS (7)
  1. ALDURAZYME [Suspect]
     Indication: MUCOPOLYSACCHARIDOSIS I
     Dosage: 1.2 MG/KG QOW IV
     Route: 042
     Dates: start: 20050413
  2. BACTRIM [Concomitant]
  3. TYLENOL (CAPLET) [Concomitant]
  4. DIPIRONE [Concomitant]
  5. CHAMOMILE, FENNEL, MELISSA (HERBAL) [Concomitant]
  6. TRANSPULMIN [Concomitant]
  7. BACTRIM [Concomitant]

REACTIONS (3)
  - ABASIA [None]
  - DISEASE PROGRESSION [None]
  - MUCOPOLYSACCHARIDOSIS I [None]
